FAERS Safety Report 25287108 (Version 2)
Quarter: 2025Q2

REPORT INFORMATION
  Report Type: Spontaneous
  Country: PT (occurrence: PT)
  Receive Date: 20250509
  Receipt Date: 20250528
  Transmission Date: 20250716
  Serious: Yes (Hospitalization, Other)
  Sender: AUROBINDO
  Company Number: PT-SUN PHARMACEUTICAL INDUSTRIES LTD-2025R1-505148

PATIENT
  Age: 76 Year
  Sex: Male

DRUGS (2)
  1. RIVAROXABAN [Suspect]
     Active Substance: RIVAROXABAN
     Indication: Gingival bleeding
     Route: 065
     Dates: start: 201503
  2. HYDROXYUREA [Concomitant]
     Active Substance: HYDROXYUREA
     Indication: Product used for unknown indication
     Route: 065
     Dates: start: 2012

REACTIONS (1)
  - Acquired Von Willebrand^s disease [Unknown]

NARRATIVE: CASE EVENT DATE: 20170401
